FAERS Safety Report 4642527-3 (Version None)
Quarter: 2005Q2

REPORT INFORMATION
  Report Type: 
  Country: None (occurrence: None)
  Receive Date: 20050422
  Receipt Date: 20050412
  Transmission Date: 20051028
  Serious: Yes (Other)
  Sender: FDA-Public Use
  Company Number: US-GLAXOSMITHKLINE-A0553723A

PATIENT
  Age: 19 Year
  Sex: Male

DRUGS (1)
  1. SOMINEX [Suspect]
     Indication: ILL-DEFINED DISORDER
     Dosage: 12TAB PER DAY
     Route: 048
     Dates: start: 20050412, end: 20050412

REACTIONS (3)
  - INTENTIONAL MISUSE [None]
  - SUICIDE ATTEMPT [None]
  - VOMITING [None]
